FAERS Safety Report 5003346-1 (Version None)
Quarter: 2006Q2

REPORT INFORMATION
  Report Type: 
  Country: None (occurrence: None)
  Receive Date: 20060511
  Receipt Date: 20060428
  Transmission Date: 20061013
  Serious: Yes (Hospitalization)
  Sender: FDA-Public Use
  Company Number: 2006009218

PATIENT
  Age: 63 Year
  Sex: Male
  Weight: 79 kg

DRUGS (5)
  1. SUTENT [Suspect]
     Indication: GASTROINTESTINAL STROMAL TUMOUR
     Dosage: 37.5 MG *37.5 MG OD INTERVAL: 4 WKS ON/2 WKS OF) ORAL
     Route: 048
     Dates: start: 20051216, end: 20060112
  2. LASIX [Concomitant]
  3. CODEINE (CODEINE) [Concomitant]
  4. LISINOPRIL [Concomitant]
  5. RHINOSPRAY(TRAMAZOLINE HYDROCHLORIDE) [Concomitant]

REACTIONS (3)
  - DIARRHOEA [None]
  - ULCER HAEMORRHAGE [None]
  - VOMITING [None]
